FAERS Safety Report 23040993 (Version 5)
Quarter: 2024Q1

REPORT INFORMATION
  Report Type: Report from Study
  Country: US (occurrence: US)
  Receive Date: 20231006
  Receipt Date: 20240108
  Transmission Date: 20240410
  Serious: No
  Sender: FDA-Public Use
  Company Number: US-002147023-NVSC2023US216072

PATIENT
  Age: 44 Year
  Sex: Female

DRUGS (1)
  1. KESIMPTA [Suspect]
     Active Substance: OFATUMUMAB
     Indication: Product used for unknown indication
     Dosage: 20 MG, QW (OTHER DOSAGE: 0.4ML)
     Route: 058
     Dates: start: 20230930

REACTIONS (6)
  - Pain [Recovered/Resolved]
  - Pain [Not Recovered/Not Resolved]
  - Chills [Recovered/Resolved]
  - Diarrhoea [Recovered/Resolved]
  - Chills [Not Recovered/Not Resolved]
  - Adverse reaction [Unknown]

NARRATIVE: CASE EVENT DATE: 20230930
